FAERS Safety Report 16961324 (Version 1)
Quarter: 2019Q4

REPORT INFORMATION
  Report Type: Spontaneous
  Country: US (occurrence: US)
  Receive Date: 20190905
  Receipt Date: 20190905
  Transmission Date: 20200122
  Serious: Yes (Other)
  Sender: FDA-Public Use
  Company Number: None

PATIENT
  Age: 58 Year
  Sex: Female
  Weight: 81.19 kg

DRUGS (1)
  1. CARBOPLATIN. [Suspect]
     Active Substance: CARBOPLATIN
     Indication: LUNG NEOPLASM MALIGNANT
     Dosage: 3 WEEKS ON 1 WEEK ON

REACTIONS (4)
  - Dyspnoea [None]
  - Flushing [None]
  - Infusion related reaction [None]
  - Hypoacusis [None]

NARRATIVE: CASE EVENT DATE: 20190807
